FAERS Safety Report 12565837 (Version 1)
Quarter: 2016Q3

REPORT INFORMATION
  Report Type: Spontaneous
  Country: US (occurrence: US)
  Receive Date: 20160718
  Receipt Date: 20160718
  Transmission Date: 20161109
  Serious: No
  Sender: FDA-Public Use
  Company Number: US-WEST-WARD PHARMACEUTICALS CORP.-US-H14001-15-00999

PATIENT
  Age: 8 Year
  Sex: Female

DRUGS (1)
  1. AMOCIXILLIN ORAL SUSPENSION USP [Suspect]
     Active Substance: AMOXICILLIN
     Indication: MALAISE
     Route: 048
     Dates: start: 20150619

REACTIONS (2)
  - Choking [Recovered/Resolved]
  - Product contamination physical [None]

NARRATIVE: CASE EVENT DATE: 201506
